FAERS Safety Report 8521142-5 (Version None)
Quarter: 2012Q3

REPORT INFORMATION
  Report Type: 
  Country: None (occurrence: None)
  Receive Date: 20120719
  Receipt Date: 20120710
  Transmission Date: 20120928
  Serious: Yes (Hospitalization, Other)
  Sender: FDA-Public Use
  Company Number: US-ELI_LILLY_AND_COMPANY-US201207003632

PATIENT
  Age: 68 Year
  Sex: Female

DRUGS (26)
  1. PROVENTIL                               /USA/ [Concomitant]
     Dosage: UNK
  2. ALLERGY MEDICATION [Concomitant]
     Dosage: UNK
  3. CITRICAL [Concomitant]
     Dosage: UNK
  4. VITAMIN D [Concomitant]
     Dosage: UNK
  5. NORCO [Concomitant]
     Dosage: UNK
  6. SPIRONOLACTONE [Concomitant]
     Dosage: UNK
  7. TICAGRELOR [Concomitant]
     Dosage: UNK
  8. FORTEO [Suspect]
     Dosage: 20 UG, QD
     Dates: start: 20120223
  9. HUMIRA [Concomitant]
     Indication: RHEUMATOID ARTHRITIS
  10. FUROSEMIDE [Concomitant]
     Dosage: UNK
  11. METOPROLOL TARTRATE [Concomitant]
     Dosage: UNK
  12. PRAVASTATIN [Concomitant]
     Dosage: UNK
  13. FORTEO [Suspect]
     Dosage: 20 UG, QD
     Dates: start: 20120223
  14. LISINOPRIL [Concomitant]
     Dosage: UNK
  15. FOLIC ACID [Concomitant]
     Dosage: UNK
  16. FISH OIL [Concomitant]
     Dosage: UNK
  17. POTASSIUM CHLORIDE [Concomitant]
     Dosage: UNK
  18. PREDNISONE [Concomitant]
     Dosage: UNK
  19. LUNESTA [Concomitant]
     Indication: INSOMNIA
     Dosage: UNK
  20. AMLODIPINE BESYLATE [Concomitant]
     Dosage: UNK
  21. CHLORPHENIRAMINE MALEATE [Concomitant]
  22. HYDROCHLOROTHIAZIDE [Concomitant]
  23. LEVOTHYROXINE SODIUM [Concomitant]
     Indication: THYROID DISORDER
  24. ASPIRIN [Concomitant]
     Dosage: 81 MG, UNKNOWN
  25. VITAMIN B-12 [Concomitant]
     Dosage: UNK
  26. OMEPRAZOLE [Concomitant]
     Dosage: UNK

REACTIONS (9)
  - TENSION [None]
  - MYOCARDIAL INFARCTION [None]
  - NAUSEA [None]
  - MEMORY IMPAIRMENT [None]
  - STENT MALFUNCTION [None]
  - LOSS OF CONSCIOUSNESS [None]
  - FOOD INTOLERANCE [None]
  - DYSPNOEA [None]
  - BONE DISORDER [None]
